FAERS Safety Report 6626643-2 (Version None)
Quarter: 2010Q1

REPORT INFORMATION
  Report Type: 
  Country: None (occurrence: None)
  Receive Date: 20100310
  Receipt Date: 20100226
  Transmission Date: 20100710
  Serious: Yes (Hospitalization, Other)
  Sender: FDA-Public Use
  Company Number: US-AMGEN-KDC395438

PATIENT
  Sex: Female

DRUGS (8)
  1. NEULASTA [Suspect]
     Indication: CHEMOTHERAPY
     Route: 058
     Dates: start: 20090321
  2. NEUPOGEN [Suspect]
     Indication: CHEMOTHERAPY
     Route: 058
     Dates: start: 20090521
  3. BEVACIZUMAB [Suspect]
     Route: 042
     Dates: start: 20090521, end: 20091005
  4. DOXORUBICIN HCL [Suspect]
     Route: 042
     Dates: start: 20090521
  5. CYCLOPHOSPHAMIDE [Suspect]
     Route: 042
     Dates: start: 20090521
  6. PACLITAXEL [Suspect]
     Route: 042
     Dates: start: 20090521
  7. CELEBREX [Suspect]
  8. OXYBUTYNIN [Suspect]

REACTIONS (2)
  - CELLULITIS [None]
  - LEFT VENTRICULAR DYSFUNCTION [None]
